FAERS Safety Report 7157538-6 (Version None)
Quarter: 2010Q4

REPORT INFORMATION
  Report Type: 
  Country: None (occurrence: None)
  Receive Date: 20101214
  Receipt Date: 20100325
  Transmission Date: 20110411
  Serious: No
  Sender: FDA-Public Use
  Company Number: US-ASTRAZENECA-2010SE07633

PATIENT
  Age: 823 Month
  Sex: Female
  Weight: 61.7 kg

DRUGS (5)
  1. CRESTOR [Suspect]
     Route: 048
     Dates: start: 20090201
  2. CRESTOR [Suspect]
     Route: 048
     Dates: start: 20090801
  3. FORTEO [Concomitant]
  4. LISINOPRIL [Concomitant]
  5. PREMARIN [Concomitant]

REACTIONS (3)
  - FEELING HOT [None]
  - MUSCLE SPASMS [None]
  - PARAESTHESIA [None]
